FAERS Safety Report 5903182-5 (Version None)
Quarter: 2008Q3

REPORT INFORMATION
  Report Type: 
  Country: None (occurrence: None)
  Receive Date: 20080929
  Receipt Date: 20080929
  Transmission Date: 20090109
  Serious: Yes (Hospitalization)
  Sender: FDA-Public Use
  Company Number: None

PATIENT
  Age: 56 Year
  Sex: Male
  Weight: 72.5755 kg

DRUGS (2)
  1. PEGINTERFERON ALFA-2A INJECTED IN MUSCLE WEEKLY FOR  PEGASYS MADE BY R [Suspect]
     Indication: HEPATITIS C
     Dosage: INJECTED IN MUSCLE ONCE A WEEK IM
     Route: 030
     Dates: start: 20030601, end: 20031101
  2. COPEGUS [Suspect]
     Indication: HEPATITIS C
     Dosage: 3 TABLETS DAILY PO
     Route: 048
     Dates: start: 20030601, end: 20031101

REACTIONS (6)
  - ANAEMIA [None]
  - ANGER [None]
  - BRADYPHRENIA [None]
  - FEELING ABNORMAL [None]
  - INFECTION [None]
  - PNEUMONIA [None]
